FAERS Safety Report 23951105 (Version 1)
Quarter: 2024Q2

REPORT INFORMATION
  Report Type: Spontaneous
  Country: US (occurrence: None)
  Receive Date: 20240607
  Receipt Date: 20240607
  Transmission Date: 20240716
  Serious: Yes (Hospitalization)
  Sender: FDA-Public Use
  Company Number: None

PATIENT
  Sex: Male
  Weight: 76.9 kg

DRUGS (1)
  1. CISPLATIN [Suspect]
     Active Substance: CISPLATIN
     Indication: Oesophagitis
     Dosage: FREQUENCY : AS DIRECTED;?
     Route: 042
     Dates: start: 20240417

REACTIONS (2)
  - Mouth ulceration [None]
  - Mucosal inflammation [None]

NARRATIVE: CASE EVENT DATE: 20240528
